FAERS Safety Report 5444447-3 (Version None)
Quarter: 2007Q3

REPORT INFORMATION
  Report Type: 
  Country: None (occurrence: None)
  Receive Date: 20070906
  Receipt Date: 20070830
  Transmission Date: 20080115
  Serious: Yes (Hospitalization)
  Sender: FDA-Public Use
  Company Number: US-BAYER-200712552BCC

PATIENT
  Age: 64 Year
  Sex: Female
  Weight: 75 kg

DRUGS (14)
  1. ASPIRIN [Suspect]
     Indication: ISCHAEMIC HEART DISEASE PROPHYLAXIS
     Dosage: TOTAL DAILY DOSE: 81 MG  UNIT DOSE: 81 MG
     Route: 048
  2. ASPIRIN [Suspect]
     Dosage: TOTAL DAILY DOSE: 81 MG  UNIT DOSE: 81 MG
     Route: 048
  3. COUMADIN [Concomitant]
     Route: 048
  4. POTASSIUM CHLORIDE [Concomitant]
  5. WATER PILL [Concomitant]
  6. LIPITOR [Concomitant]
     Route: 048
  7. CALCIUM [Concomitant]
     Route: 048
  8. SHOP RITE VITAMIN [Concomitant]
  9. FUROSEMIDE [Concomitant]
     Route: 048
  10. KLOR-CON [Concomitant]
     Route: 048
  11. ATENOLOL [Concomitant]
     Route: 048
  12. OXYCODONE WITH APAP [Concomitant]
  13. CLONIDINE HCL [Concomitant]
  14. BIOTIN [Concomitant]
     Route: 048

REACTIONS (5)
  - ERYTHEMA [None]
  - MUSCULOSKELETAL STIFFNESS [None]
  - OEDEMA PERIPHERAL [None]
  - PAIN IN EXTREMITY [None]
  - THROMBOSIS [None]
